FAERS Safety Report 4368741-2 (Version None)
Quarter: 2004Q2

REPORT INFORMATION
  Report Type: 
  Country: None (occurrence: None)
  Receive Date: 20040528
  Receipt Date: 20040517
  Transmission Date: 20050107
  Serious: Yes (Other)
  Sender: FDA-Public Use
  Company Number: 2003122605

PATIENT
  Age: 29 Year
  Sex: Male

DRUGS (1)
  1. VIAGRA [Suspect]
     Indication: ERECTILE DYSFUNCTION
     Dosage: 25 MG (AS NEEDED), ORAL
     Route: 048
     Dates: start: 20010312

REACTIONS (8)
  - CONDITION AGGRAVATED [None]
  - FATIGUE [None]
  - GAIT DISTURBANCE [None]
  - GENERAL PHYSICAL CONDITION ABNORMAL [None]
  - IMPAIRED DRIVING ABILITY [None]
  - IMPAIRED WORK ABILITY [None]
  - PERONEAL MUSCULAR ATROPHY [None]
  - VISUAL ACUITY REDUCED [None]
